FAERS Safety Report 25254794 (Version 1)
Quarter: 2025Q2

REPORT INFORMATION
  Report Type: Spontaneous
  Country: CN (occurrence: CN)
  Receive Date: 20250430
  Receipt Date: 20250430
  Transmission Date: 20250717
  Serious: Yes (Hospitalization, Other)
  Sender: Haleon PLC
  Company Number: CN-HALEON-2238928

PATIENT
  Age: 85 Year
  Sex: Female
  Weight: 65 kg

DRUGS (2)
  1. VOLTAREN [Suspect]
     Active Substance: DICLOFENAC SODIUM
     Indication: Pain in extremity
     Dosage: SUSTAINED RELEASE TABLETS
     Route: 048
     Dates: start: 20250329, end: 20250412
  2. VOLTAREN [Suspect]
     Active Substance: DICLOFENAC SODIUM
     Indication: Analgesic therapy

REACTIONS (9)
  - Haematemesis [Recovered/Resolved]
  - Atrioventricular block first degree [Recovering/Resolving]
  - Atrioventricular block second degree [Recovering/Resolving]
  - Gastric mucosal lesion [Recovering/Resolving]
  - Melaena [Recovering/Resolving]
  - Gastrointestinal haemorrhage [Recovering/Resolving]
  - Peptic ulcer haemorrhage [Recovering/Resolving]
  - Gastrointestinal carcinoma [Recovering/Resolving]
  - Anaemia [Recovering/Resolving]

NARRATIVE: CASE EVENT DATE: 20250412
